FAERS Safety Report 8509878-3 (Version None)
Quarter: 2012Q3

REPORT INFORMATION
  Report Type: 
  Country: None (occurrence: None)
  Receive Date: 20120713
  Receipt Date: 20120709
  Transmission Date: 20120928
  Serious: Yes (Death)
  Sender: FDA-Public Use
  Company Number: JP-JNJFOC-20120610148

PATIENT
  Age: 72 Year
  Sex: Male

DRUGS (5)
  1. SEISHOKU [Concomitant]
     Route: 042
     Dates: end: 20120614
  2. FENTANYL-100 [Suspect]
     Indication: CANCER PAIN
     Route: 062
  3. SANDOSTATIN [Concomitant]
     Route: 042
     Dates: end: 20120614
  4. DEXAMETHASONE SODIUM PHOSPHATE [Concomitant]
     Route: 042
     Dates: end: 20120614
  5. ELNEOPA NO 1 [Concomitant]
     Route: 042
     Dates: end: 20120614

REACTIONS (1)
  - DEATH [None]
